FAERS Safety Report 22617571 (Version 2)
Quarter: 2023Q2

REPORT INFORMATION
  Report Type: Spontaneous
  Country: RO (occurrence: RO)
  Receive Date: 20230620
  Receipt Date: 20230627
  Transmission Date: 20230722
  Serious: Yes (Life-Threatening, Hospitalization, Other)
  Sender: FDA-Public Use
  Company Number: RO-CHEPLA-2023006529

PATIENT
  Age: 27 Year
  Sex: Female

DRUGS (11)
  1. MEROPENEM [Suspect]
     Active Substance: MEROPENEM
     Indication: Antibiotic therapy
     Dosage: 1 GRAM, 3 TIMES A DAY(TDS- THREE TIMES A DAY)
     Route: 042
  2. DEXAMETHASONE [Suspect]
     Active Substance: DEXAMETHASONE
     Indication: Acute promyelocytic leukaemia
     Dosage: 16 MILLIGRAM, TWO TIMES A DAY(BID)
     Route: 065
  3. DEXAMETHASONE [Suspect]
     Active Substance: DEXAMETHASONE
     Dosage: 2.5 MILLIGRAM/SQ. METER, TWO TIMES A DAY(BID)
     Route: 042
  4. DEXAMETHASONE [Suspect]
     Active Substance: DEXAMETHASONE
     Dosage: 10 MILLIGRAM, TWO TIMES A DAY(BID)
     Route: 042
  5. HYDROXYUREA [Suspect]
     Active Substance: HYDROXYUREA
     Indication: Acute promyelocytic leukaemia
     Dosage: 3 GRAM, ONCE A DAY
     Route: 065
  6. IDARUBICIN [Suspect]
     Active Substance: IDARUBICIN
     Indication: Acute promyelocytic leukaemia
     Dosage: 25 MILLIGRAM(2 DOSES IN TOTAL)
     Route: 042
  7. LINEZOLID [Suspect]
     Active Substance: LINEZOLID
     Indication: Antibiotic therapy
     Dosage: 600 MILLIGRAM, TWO TIMES A DAY(BID)
     Route: 042
  8. PIPERACILLIN SODIUM\TAZOBACTAM SODIUM [Suspect]
     Active Substance: PIPERACILLIN SODIUM\TAZOBACTAM SODIUM
     Indication: Sepsis
     Dosage: UNK
     Route: 065
  9. PIPERACILLIN SODIUM\TAZOBACTAM SODIUM [Suspect]
     Active Substance: PIPERACILLIN SODIUM\TAZOBACTAM SODIUM
     Indication: Antibiotic therapy
  10. TRETINOIN [Suspect]
     Active Substance: TRETINOIN
     Indication: Acute promyelocytic leukaemia
     Dosage: 25 MILLIGRAM/SQ. METER(THE ATRA WAS REINTRODUCED ON THE 5TH DAY AFTER ADMISSION, BID)
     Route: 048
  11. TRETINOIN [Suspect]
     Active Substance: TRETINOIN
     Dosage: 45 MILLIGRAM/SQ. METER(BID, ATRA WAS INTERRUPTED ON DAY 2)
     Route: 048

REACTIONS (6)
  - Postpartum haemorrhage [Unknown]
  - Extubation [Unknown]
  - Myopathy [Unknown]
  - Exposure during pregnancy [Recovered/Resolved]
  - Abortion spontaneous [Recovered/Resolved]
  - Differentiation syndrome [Unknown]
